FAERS Safety Report 9565693 (Version 2)
Quarter: 2013Q4

REPORT INFORMATION
  Report Type: Spontaneous
  Country: US (occurrence: US)
  Receive Date: 20130930
  Receipt Date: 20131003
  Transmission Date: 20140711
  Serious: Yes (Other)
  Sender: FDA-Public Use
  Company Number: US-PFIZER INC-2013279831

PATIENT
  Age: 51 Year
  Sex: Female
  Weight: 79.37 kg

DRUGS (10)
  1. LYRICA [Suspect]
     Indication: NERVE INJURY
     Dosage: (50MG TWO TIMES A DAY AND 100MG AT NIGHT) UNK, 3X/DAY
     Dates: start: 2013
  2. LYRICA [Suspect]
     Indication: HYPOAESTHESIA
     Dosage: 50 MG, 3X/DAY
  3. LYRICA [Suspect]
     Dosage: 150 MG, 2X/DAY
  4. NUCYNTA [Suspect]
     Indication: ANALGESIC THERAPY
     Dosage: 100 MG, 6X/DAY
     Dates: start: 2013
  5. INDERAL [Concomitant]
     Indication: HYPERTENSION
     Dosage: 80 MG, UNK
  6. INDERAL [Concomitant]
     Dosage: 40 MG, AS NEEDED
  7. CYCLOBENZAPRINE [Concomitant]
     Indication: MUSCLE SPASMS
     Dosage: 10 MG, AS NEEDED
  8. CYCLOBENZAPRINE [Concomitant]
     Indication: LIGAMENT RUPTURE
  9. LEVOTHYROXINE [Concomitant]
     Indication: THYROID DISORDER
     Dosage: 50 UG, DAILY
  10. IBUPROFEN [Concomitant]
     Indication: PAIN
     Dosage: UNK

REACTIONS (5)
  - Weight increased [Not Recovered/Not Resolved]
  - Musculoskeletal discomfort [Unknown]
  - Body surface area increased [Not Recovered/Not Resolved]
  - Asthenia [Unknown]
  - Drug effect decreased [Unknown]
